FAERS Safety Report 9484944 (Version 1)
Quarter: 2013Q3

REPORT INFORMATION
  Report Type: Report from Study
  Country: US (occurrence: US)
  Receive Date: 20130828
  Receipt Date: 20130828
  Transmission Date: 20140515
  Serious: No
  Sender: FDA-Public Use
  Company Number: US-ABBOTT-13P-163-1120780-00

PATIENT
  Sex: Female
  Weight: 59.93 kg

DRUGS (2)
  1. ANDROGEL [Suspect]
     Indication: PRODUCT USED FOR UNKNOWN INDICATION
     Dosage: HUSBAND^S USE
  2. ESTROGEN NOS W/PROGESTERONE/TESTOSTERONE [Concomitant]
     Indication: HORMONE LEVEL ABNORMAL
     Dates: start: 2003

REACTIONS (2)
  - Blood testosterone increased [Not Recovered/Not Resolved]
  - Accidental exposure to product [Recovered/Resolved]
